FAERS Safety Report 8393503-9 (Version None)
Quarter: 2012Q2

REPORT INFORMATION
  Report Type: 
  Country: None (occurrence: None)
  Receive Date: 20120529
  Receipt Date: 20120518
  Transmission Date: 20120825
  Serious: Yes (Death)
  Sender: FDA-Public Use
  Company Number: US-ACTELION-A-US2012-65832

PATIENT

DRUGS (4)
  1. COUMADIN [Concomitant]
  2. REMODULIN [Concomitant]
  3. EPOPROSTENOL SODIUM [Suspect]
     Indication: PULMONARY ARTERIAL HYPERTENSION
     Dosage: UNK
     Route: 042
     Dates: start: 20110330, end: 20120508
  4. LOVENOX [Concomitant]

REACTIONS (2)
  - PULMONARY HYPERTENSION [None]
  - DISEASE COMPLICATION [None]
